FAERS Safety Report 5900656-8 (Version None)
Quarter: 2008Q3

REPORT INFORMATION
  Report Type: 
  Country: None (occurrence: None)
  Receive Date: 20080926
  Receipt Date: 20080917
  Transmission Date: 20090109
  Serious: Yes (Other)
  Sender: FDA-Public Use
  Company Number: SE-PFIZER INC-2008078983

PATIENT

DRUGS (4)
  1. SERTRALINE [Suspect]
     Route: 064
  2. FLUOXETINE [Suspect]
     Route: 064
  3. IRON [Suspect]
     Route: 064
  4. VITAMINS [Suspect]
     Route: 064

REACTIONS (2)
  - DRUG EXPOSURE DURING PREGNANCY [None]
  - PERSISTENT FOETAL CIRCULATION [None]
